FAERS Safety Report 15768996 (Version 2)
Quarter: 2019Q2

REPORT INFORMATION
  Report Type: Spontaneous
  Country: US (occurrence: US)
  Receive Date: 20181228
  Receipt Date: 20190425
  Transmission Date: 20190711
  Serious: No
  Sender: FDA-Public Use
  Company Number: US-SHIRE-US201849776

PATIENT
  Sex: Male

DRUGS (3)
  1. XIIDRA [Suspect]
     Active Substance: LIFITEGRAST
     Dosage: UNK UNK, OTHER (EVERY FOURTH DAY)
     Route: 047
     Dates: start: 20170107
  2. XIIDRA [Suspect]
     Active Substance: LIFITEGRAST
     Indication: DRY EYE
     Dosage: EVERY 4 DAYS
     Route: 047
  3. RESTASIS [Concomitant]
     Active Substance: CYCLOSPORINE
     Indication: DRY EYE

REACTIONS (7)
  - Expired product administered [Unknown]
  - Instillation site pain [Recovering/Resolving]
  - Blepharitis [Unknown]
  - Instillation site lacrimation [Recovered/Resolved]
  - Dysgeusia [Recovered/Resolved]
  - Off label use [Recovered/Resolved]
  - Sinus headache [Unknown]

NARRATIVE: CASE EVENT DATE: 20170123
